FAERS Safety Report 7381570-0 (Version None)
Quarter: 2011Q1

REPORT INFORMATION
  Report Type: 
  Country: None (occurrence: None)
  Receive Date: 20110329
  Receipt Date: 20110318
  Transmission Date: 20110831
  Serious: Yes (Death)
  Sender: FDA-Public Use
  Company Number: GR-PFIZER INC-2011037339

PATIENT
  Age: 72 Year
  Sex: Male

DRUGS (6)
  1. METHYLPREDNISOLONE [Suspect]
     Dosage: 24 MG/DAY
  2. METHYLPREDNISOLONE [Suspect]
     Dosage: 16 MG/DAY
  3. INSULIN [Concomitant]
  4. METHYLPREDNISOLONE [Suspect]
     Dosage: 48 MG/DAY
  5. METHYLPREDNISOLONE [Suspect]
     Indication: ANAEMIA HAEMOLYTIC AUTOIMMUNE
     Dosage: 64 MG, 1X/DAY
     Route: 048
  6. FAMCICLOVIR [Concomitant]

REACTIONS (2)
  - WEGENER'S GRANULOMATOSIS [None]
  - SEPSIS [None]
